FAERS Safety Report 6295968-5 (Version None)
Quarter: 2009Q3

REPORT INFORMATION
  Report Type: 
  Country: None (occurrence: None)
  Receive Date: 20090803
  Receipt Date: 20090803
  Transmission Date: 20100115
  Serious: Yes (Death)
  Sender: FDA-Public Use
  Company Number: None

PATIENT
  Age: 46 Year
  Sex: Male
  Weight: 51 kg

DRUGS (7)
  1. TRUVADA [Suspect]
     Indication: HIV INFECTION
     Dosage: 200/300 MG ONCE DAILY ORAL
     Route: 048
     Dates: start: 20090604
  2. EFAVIRENZ [Suspect]
     Indication: HIV INFECTION
     Dosage: 600 MG ONCE DAILY ORAL
     Route: 048
     Dates: start: 20090604
  3. COTRIM [Concomitant]
  4. RIFAMPICIN [Concomitant]
  5. ISONIAZID [Concomitant]
  6. PYRIZINAMIDE [Concomitant]
  7. ETHAMBUTOL [Concomitant]

REACTIONS (4)
  - BACTERIAL SEPSIS [None]
  - MALARIA [None]
  - PAIN [None]
  - PULMONARY TUBERCULOSIS [None]
